FAERS Safety Report 8451076-6 (Version None)
Quarter: 2012Q2

REPORT INFORMATION
  Report Type: 
  Country: None (occurrence: None)
  Receive Date: 20120620
  Receipt Date: 20120606
  Transmission Date: 20120825
  Serious: Yes (Death, Other)
  Sender: FDA-Public Use
  Company Number: FR-ROCHE-1076195

PATIENT

DRUGS (1)
  1. MABTHERA [Suspect]
     Indication: RHEUMATOID ARTHRITIS

REACTIONS (5)
  - SEPTIC SHOCK [None]
  - DEEP VEIN THROMBOSIS [None]
  - POSTOPERATIVE WOUND INFECTION [None]
  - IMPAIRED HEALING [None]
  - LUNG INFECTION [None]
